FAERS Safety Report 9011601 (Version 2)
Quarter: 2013Q1

REPORT INFORMATION
  Report Type: Spontaneous
  Country: US (occurrence: US)
  Receive Date: 20130108
  Receipt Date: 20130115
  Transmission Date: 20140127
  Serious: Yes (Hospitalization, Other)
  Sender: FDA-Public Use
  Company Number: US-VERTEX PHARMACEUTICALS INC.-2013-000212

PATIENT
  Age: 61 Year
  Sex: Male

DRUGS (3)
  1. INCIVEK [Suspect]
     Indication: HEPATITIS C
     Dosage: UNK
     Route: 048
     Dates: start: 20121111, end: 20121228
  2. PEGASYS [Suspect]
     Indication: HEPATITIS C
     Dosage: UNK
     Dates: start: 20121111, end: 20121228
  3. RIBAVIRIN [Suspect]
     Indication: HEPATITIS C
     Dosage: UNK
     Dates: start: 20121111, end: 20121228

REACTIONS (5)
  - Retinal detachment [Not Recovered/Not Resolved]
  - Blindness [Unknown]
  - Retinal haemorrhage [Not Recovered/Not Resolved]
  - Retinal exudates [Not Recovered/Not Resolved]
  - Anaemia [Unknown]
